FAERS Safety Report 4998591-5 (Version None)
Quarter: 2006Q2

REPORT INFORMATION
  Report Type: 
  Country: None (occurrence: None)
  Receive Date: 20060508
  Receipt Date: 20060427
  Transmission Date: 20061013
  Serious: Yes (Hospitalization)
  Sender: FDA-Public Use
  Company Number: 2005-02524

PATIENT
  Sex: Male

DRUGS (3)
  1. VELCADE [Suspect]
     Dosage: SEE IMAGE
     Route: 042
     Dates: start: 20051129, end: 20051202
  2. VELCADE [Suspect]
     Dosage: SEE IMAGE
     Route: 042
     Dates: end: 20060131
  3. DEXAMETHASONE [Concomitant]

REACTIONS (6)
  - ACUTE ABDOMEN [None]
  - CARDIAC FAILURE [None]
  - CARDIOVASCULAR DISORDER [None]
  - COLITIS ISCHAEMIC [None]
  - LUNG DISORDER [None]
  - SYSTEMIC INFLAMMATORY RESPONSE SYNDROME [None]
